FAERS Safety Report 6476517-5 (Version None)
Quarter: 2009Q4

REPORT INFORMATION
  Report Type: 
  Country: None (occurrence: None)
  Receive Date: 20091207
  Receipt Date: 20091104
  Transmission Date: 20100525
  Serious: No
  Sender: FDA-Public Use
  Company Number: US-BAYER-200934854NA

PATIENT
  Age: 44 Year
  Sex: Male

DRUGS (4)
  1. AVELOX [Suspect]
     Indication: RESPIRATORY TRACT INFECTION
     Dosage: UNIT DOSE: 400 MG
     Dates: start: 20090921
  2. BENICAR HCT [Concomitant]
     Dosage: 40/12.5
  3. ALPRAZOLAM [Concomitant]
  4. HYCODAN [Concomitant]

REACTIONS (2)
  - BLISTER [None]
  - RASH [None]
